FAERS Safety Report 19601474 (Version 1)
Quarter: 2021Q3

REPORT INFORMATION
  Report Type: Spontaneous
  Country: US (occurrence: US)
  Receive Date: 20210722
  Receipt Date: 20210722
  Transmission Date: 20211014
  Serious: No
  Sender: FDA-Public Use
  Company Number: 2020SGN02085

PATIENT
  Sex: Female

DRUGS (4)
  1. CAPECITABINE. [Concomitant]
     Active Substance: CAPECITABINE
  2. TUKYSA [Suspect]
     Active Substance: TUCATINIB
     Indication: BREAST CANCER FEMALE
     Dosage: UNK UNK, BID
     Route: 048
  3. TRASTUZUMAB. [Concomitant]
     Active Substance: TRASTUZUMAB
  4. TUKYSA [Suspect]
     Active Substance: TUCATINIB
     Dosage: 150 MG

REACTIONS (6)
  - Asthenia [Unknown]
  - Fatigue [Unknown]
  - Disease progression [Unknown]
  - Pain in extremity [Unknown]
  - Pain [Unknown]
  - Diarrhoea [Unknown]
